FAERS Safety Report 19404680 (Version 1)
Quarter: 2021Q2

REPORT INFORMATION
  Report Type: Spontaneous
  Country: JP (occurrence: JP)
  Receive Date: 20210611
  Receipt Date: 20210611
  Transmission Date: 20210717
  Serious: Yes (Other)
  Sender: FDA-Public Use
  Company Number: JP-TEVA-2021-JP-002852J

PATIENT
  Sex: Male

DRUGS (2)
  1. OLANZAPINE TABLET 10MG ^TEVA^ [Suspect]
     Active Substance: OLANZAPINE
     Indication: PRODUCT USED FOR UNKNOWN INDICATION
     Route: 048
  2. DOGMATYL [Concomitant]
     Active Substance: SULPIRIDE
     Route: 048

REACTIONS (2)
  - Delusion [Unknown]
  - Hallucination [Unknown]
